FAERS Safety Report 8285702-1 (Version None)
Quarter: 2012Q2

REPORT INFORMATION
  Report Type: 
  Country: None (occurrence: None)
  Receive Date: 20120413
  Receipt Date: 20120404
  Transmission Date: 20120825
  Serious: Yes (Life-Threatening, Hospitalization)
  Sender: FDA-Public Use
  Company Number: US-ROCHE-1056942

PATIENT
  Age: 44 Year
  Sex: Female

DRUGS (1)
  1. MYCOPHENOLATE MOFETIL (CELLCEPT) [Suspect]
     Indication: RENAL TRANSPLANT

REACTIONS (6)
  - APALLIC SYNDROME [None]
  - HAEMODIALYSIS [None]
  - RENAL TUBULAR NECROSIS [None]
  - MYOCARDIAL INFARCTION [None]
  - GASTROINTESTINAL TUBE INSERTION [None]
  - RENAL IMPAIRMENT [None]
